FAERS Safety Report 4367657-5 (Version None)
Quarter: 2004Q2

REPORT INFORMATION
  Report Type: 
  Country: None (occurrence: None)
  Receive Date: 20040601
  Receipt Date: 20040428
  Transmission Date: 20050107
  Serious: Yes (Death)
  Sender: FDA-Public Use
  Company Number: US-GLAXOSMITHKLINE-A0508756A

PATIENT
  Sex: Male

DRUGS (2)
  1. ZANTAC [Suspect]
     Indication: GASTRIC DISORDER
     Route: 048
     Dates: start: 20040423
  2. POLYPHARMACY [Concomitant]

REACTIONS (1)
  - HYPERSENSITIVITY [None]
